FAERS Safety Report 24058910 (Version 1)
Quarter: 2024Q3

REPORT INFORMATION
  Report Type: Spontaneous
  Country: PL (occurrence: PL)
  Receive Date: 20240708
  Receipt Date: 20240708
  Transmission Date: 20241017
  Serious: Yes (Death, Life-Threatening, Hospitalization, Other)
  Sender: VELOXIS PHARMACEUTICALS
  Company Number: PL-MLMSERVICE-20240625-PI109039-00306-1

PATIENT
  Age: 70 Year
  Sex: Male

DRUGS (2)
  1. TACROLIMUS [Suspect]
     Active Substance: TACROLIMUS
     Indication: Immunosuppressant drug therapy
     Dosage: UNK
     Dates: start: 2012
  2. MYCOPHENOLIC ACID [Suspect]
     Active Substance: MYCOPHENOLIC ACID
     Indication: Immunosuppressant drug therapy
     Dosage: UNK
     Dates: start: 2012

REACTIONS (7)
  - Pancytopenia [Fatal]
  - Disseminated tuberculosis [Fatal]
  - Bone tuberculosis [Fatal]
  - Lymph node tuberculosis [Fatal]
  - Renal tuberculosis [Fatal]
  - Spleen tuberculosis [Fatal]
  - Pulmonary tuberculosis [Fatal]

NARRATIVE: CASE EVENT DATE: 20170101
